FAERS Safety Report 7362569-7 (Version None)
Quarter: 2011Q1

REPORT INFORMATION
  Report Type: 
  Country: None (occurrence: None)
  Receive Date: 20110320
  Receipt Date: 20100908
  Transmission Date: 20110831
  Serious: Yes (Hospitalization, Other)
  Sender: FDA-Public Use
  Company Number: US-BAYER-201011597NA

PATIENT
  Sex: Female
  Weight: 73.469 kg

DRUGS (18)
  1. LEVAQUIN [Concomitant]
  2. LOVENOX [Concomitant]
     Dosage: 75 MG, BID
     Route: 058
     Dates: start: 20081206
  3. HYDROCODONE BITARTRATE [Concomitant]
     Dosage: UNK
     Dates: start: 20081130
  4. NORCO [Concomitant]
     Dosage: UNK UNK, PRN
  5. AMOXICILLIN [Concomitant]
     Dosage: UNK
     Dates: start: 20000101, end: 20100101
  6. UNCODEABLE ^UNCLASSIFIABLE^ [Concomitant]
     Dosage: UNK
     Dates: start: 20040601
  7. YASMIN [Suspect]
     Indication: CONTRACEPTION
     Dosage: 1 TAB/DAY
     Route: 048
     Dates: start: 20080619, end: 20080701
  8. OCELLA [Suspect]
     Indication: CONTRACEPTION
     Dosage: 1 TAB/DAY
     Route: 048
     Dates: start: 20080710, end: 20081130
  9. YAZ [Suspect]
     Indication: CONTRACEPTION
     Dosage: 1 TAB/DAY
  10. IBUPROFEN [Concomitant]
     Dosage: UNK
     Dates: start: 19960101
  11. PHENTERMINE [Concomitant]
     Dosage: UNK
     Dates: start: 20071201, end: 20080201
  12. SYNTHROID [Concomitant]
     Indication: HYPOTHYROIDISM
     Dosage: 125 ?G, QD
     Route: 048
     Dates: start: 19990101
  13. ATIVAN [Concomitant]
     Dosage: 0.5 MG, PRN
     Route: 048
  14. MORPHINE SULFATE [Concomitant]
     Indication: PAIN
     Dosage: UNK
     Dates: start: 20081130
  15. TYLENOL REGULAR [Concomitant]
  16. PHENTERMINE [Concomitant]
     Indication: WEIGHT CONTROL
     Dosage: UNK
     Dates: start: 20060201, end: 20060601
  17. PROVERA [Concomitant]
     Dosage: 10 MG, PRN
  18. MULTIVITAMIN [Concomitant]

REACTIONS (5)
  - DYSPNOEA [None]
  - PULMONARY INFARCTION [None]
  - CHEST DISCOMFORT [None]
  - PULMONARY EMBOLISM [None]
  - CHEST PAIN [None]
